FAERS Safety Report 16199994 (Version 3)
Quarter: 2019Q2

REPORT INFORMATION
  Report Type: Report from Study
  Country: CA (occurrence: CA)
  Receive Date: 20190415
  Receipt Date: 20190608
  Transmission Date: 20190711
  Serious: Yes (Other)
  Sender: FDA-Public Use
  Company Number: CA-BRISTOL-MYERS SQUIBB COMPANY-BMS-2019-025309

PATIENT
  Age: 37 Year
  Sex: Female

DRUGS (2)
  1. NIVOLUMAB [Suspect]
     Active Substance: NIVOLUMAB
     Indication: HODGKIN^S DISEASE
     Dosage: 480 MILLIGRAM, Q4WK
     Route: 042
     Dates: start: 20190214
  2. NIVOLUMAB [Suspect]
     Active Substance: NIVOLUMAB
     Indication: PRODUCT USED FOR UNKNOWN INDICATION
     Dosage: 480 MILLIGRAM, Q4WK
     Route: 042
     Dates: start: 20190430

REACTIONS (8)
  - Cough [Recovering/Resolving]
  - Influenza like illness [Recovering/Resolving]
  - Malaise [Unknown]
  - Pulmonary congestion [Recovering/Resolving]
  - Nausea [Unknown]
  - Neutropenia [Unknown]
  - Fatigue [Recovering/Resolving]
  - Headache [Unknown]

NARRATIVE: CASE EVENT DATE: 20190313
